FAERS Safety Report 9483733 (Version 1)
Quarter: 2013Q3

REPORT INFORMATION
  Report Type: Spontaneous
  Country: US (occurrence: US)
  Receive Date: 20130828
  Receipt Date: 20130828
  Transmission Date: 20140515
  Serious: Yes (Hospitalization, Other)
  Sender: FDA-Public Use
  Company Number: US-B.I. PHARMACEUTICALS,INC./RIDGEFIELD-2013-BI-26306BP

PATIENT
  Sex: Female

DRUGS (5)
  1. CATAPRES TTS [Suspect]
     Indication: HYPERTENSION
     Dosage: STRENGTH: 7.5 MG (0.3 MG / DAY);
     Route: 061
  2. ATENOLOL [Concomitant]
     Route: 048
  3. NORVASC [Concomitant]
     Route: 048
  4. DYAZIDE [Concomitant]
     Route: 048
  5. ASPIRIN [Concomitant]
     Route: 048

REACTIONS (3)
  - Arterial occlusive disease [Recovered/Resolved]
  - Myocardial infarction [Recovered/Resolved]
  - Heart rate abnormal [Recovered/Resolved]
